FAERS Safety Report 10652810 (Version 3)
Quarter: 2016Q1

REPORT INFORMATION
  Report Type: Spontaneous
  Country: JP (occurrence: JP)
  Receive Date: 20141215
  Receipt Date: 20160129
  Transmission Date: 20160525
  Serious: Yes (Death)
  Sender: FDA-Public Use
  Company Number: JP-ELI_LILLY_AND_COMPANY-JP201310003336

PATIENT
  Age: 78 Year
  Sex: Female
  Weight: 55.8 kg

DRUGS (13)
  1. FERROUS CITRATE [Concomitant]
     Active Substance: FERROUS CITRATE
     Dosage: UNK
     Route: 048
  2. LANSOPRAZOLE. [Concomitant]
     Active Substance: LANSOPRAZOLE
     Dosage: UNK
     Route: 048
  3. LOXOPROFEN [Concomitant]
     Active Substance: LOXOPROFEN
     Dosage: UNK
     Route: 048
  4. TRACLEER [Concomitant]
     Active Substance: BOSENTAN
     Dosage: 3 DF, UNK
     Route: 048
  5. URSO [Concomitant]
     Active Substance: URSODIOL
     Dosage: 6 DF, UNK
     Route: 048
  6. MYSLEE [Concomitant]
     Active Substance: ZOLPIDEM TARTRATE
     Dosage: UNK
     Route: 048
  7. LOXONIN [Concomitant]
     Active Substance: LOXOPROFEN SODIUM
     Dosage: UNK
     Route: 048
  8. DORNER [Concomitant]
     Active Substance: BERAPROST SODIUM
     Dosage: 6 DF, UNK
     Route: 048
  9. TOFRANIL [Concomitant]
     Active Substance: IMIPRAMINE HYDROCHLORIDE
     Dosage: 2 DF, UNK
     Route: 048
  10. DEPAS [Concomitant]
     Active Substance: ETIZOLAM
     Dosage: UNK
     Route: 048
  11. ADCIRCA [Suspect]
     Active Substance: TADALAFIL
     Indication: PULMONARY ARTERIAL HYPERTENSION
     Dosage: UNK
     Route: 048
     Dates: start: 20130327
  12. MAGMITT [Concomitant]
     Active Substance: MAGNESIUM OXIDE
     Dosage: UNK
     Route: 048
  13. ATELEC [Concomitant]
     Active Substance: CILNIDIPINE
     Dosage: 1 DF, UNK
     Route: 048

REACTIONS (1)
  - Pulmonary arterial hypertension [Fatal]
